FAERS Safety Report 22773536 (Version 7)
Quarter: 2025Q3

REPORT INFORMATION
  Report Type: Spontaneous
  Country: JP (occurrence: JP)
  Receive Date: 20230801
  Receipt Date: 20250802
  Transmission Date: 20251021
  Serious: Yes (Life-Threatening, Hospitalization, Other)
  Sender: ALEXION PHARMACEUTICALS
  Company Number: 2023A171952

PATIENT
  Age: 77 Year
  Sex: Male
  Weight: 55 kg

DRUGS (7)
  1. IMFINZI [Suspect]
     Active Substance: DURVALUMAB
     Indication: Hepatocellular carcinoma
     Dates: start: 20230711, end: 20230711
  2. IMJUDO [Suspect]
     Active Substance: TREMELIMUMAB\TREMELIMUMAB-ACTL
     Indication: Hepatocellular carcinoma
     Dates: start: 20230711, end: 20230711
  3. METGLUCO [Concomitant]
     Active Substance: METFORMIN HYDROCHLORIDE
  4. METGLUCO [Concomitant]
     Active Substance: METFORMIN HYDROCHLORIDE
     Route: 065
  5. EPLERENONE [Concomitant]
     Active Substance: EPLERENONE
     Indication: Hypertension
     Dosage: IN THE MORNING
     Dates: start: 20090401, end: 20230723
  6. CADUET [Concomitant]
     Active Substance: AMLODIPINE BESYLATE\ATORVASTATIN CALCIUM
     Indication: Hypertension
     Dosage: AMLODIPINE (AMLODIPINE BESILATE) 5 MG, ATORVASTATIN (ATORVASTATIN CALCIUM HYDRATE) 10 MG, IN THE MORNING
     Dates: start: 20171030, end: 20230723
  7. METFORMIN HYDROCHLORIDE\VILDAGLIPTIN [Concomitant]
     Active Substance: METFORMIN HYDROCHLORIDE\VILDAGLIPTIN
     Indication: Type 2 diabetes mellitus
     Dosage: VILDAGLIPTIN 50 MG/METFORMIN HYDROCHLORIDE 500 MG
     Dates: start: 20180129, end: 20230723

REACTIONS (9)
  - Fulminant type 1 diabetes mellitus [Recovered/Resolved with Sequelae]
  - Myositis [Recovered/Resolved]
  - Renal failure [Recovering/Resolving]
  - Metabolic acidosis [Recovering/Resolving]
  - Hepatitis [Recovered/Resolved]
  - Pancreatitis [Recovered/Resolved]
  - Rhabdomyolysis [Recovered/Resolved]
  - Hepatic steatosis [Recovered/Resolved]
  - Multi-organ disorder [Recovering/Resolving]

NARRATIVE: CASE EVENT DATE: 20230721
